FAERS Safety Report 14491365 (Version 9)
Quarter: 2018Q3

REPORT INFORMATION
  Report Type: Spontaneous
  Country: DE (occurrence: DE)
  Receive Date: 20180206
  Receipt Date: 20180716
  Transmission Date: 20181010
  Serious: Yes (Death, Hospitalization)
  Sender: FDA-Public Use
  Company Number: PHHY2017DE200391

PATIENT
  Age: 74 Year
  Sex: Male
  Weight: 85 kg

DRUGS (17)
  1. DEXAMETHASONE. [Suspect]
     Active Substance: DEXAMETHASONE
     Indication: PLASMA CELL MYELOMA
     Dosage: 40 MG, QW (DAILY DOSE: 40 MG MILLIGRAM(S) EVERY WEEK)
     Route: 041
     Dates: start: 20160901, end: 20171006
  2. DARATUMUMAB [Concomitant]
     Active Substance: DARATUMUMAB
     Dosage: 1360 MG, Q4W
     Route: 041
     Dates: start: 20160901, end: 20161020
  3. PALLADON [Concomitant]
     Active Substance: HYDROMORPHONE
     Indication: BACK PAIN
     Dosage: 32 MG, QD (DAILY DOSE: 32 MG MILLIGRAM(S) EVERY DAY)
     Route: 048
     Dates: start: 20160929
  4. VIGANTOLETTEN [Concomitant]
     Active Substance: CHOLECALCIFEROL
     Indication: OSTEOPOROSIS
     Dosage: 500 IU, QD (DAILY DOSE: 500 IU INTERNATIONAL UNIT(S) EVERY DAY)
     Route: 048
     Dates: start: 20160830
  5. TAMSULOSIN [Concomitant]
     Active Substance: TAMSULOSIN
     Indication: BENIGN PROSTATIC HYPERPLASIA
     Dosage: 0.4 MG, QD (DAILY DOSE: 0.4 MG MILLIGRAM(S) EVERY DAY)
     Route: 048
     Dates: start: 2009
  6. ACICLOVIR [Concomitant]
     Active Substance: ACYCLOVIR
     Indication: INFECTION
     Dosage: 400 MG, QD (DAILY DOSE: 400 MG MILLIGRAM(S) EVERY DAY)
     Route: 048
     Dates: start: 20160901
  7. METFORMIN [Concomitant]
     Active Substance: METFORMIN HYDROCHLORIDE
     Indication: TYPE 2 DIABETES MELLITUS
     Dosage: 850 MG, QD (1700 MG)
     Route: 048
     Dates: start: 2008
  8. ZOMETA [Concomitant]
     Active Substance: ZOLEDRONIC ACID
     Indication: OSTEOLYSIS
     Dosage: 4 MG, Q4W (EVERY 4 WEEK)
     Route: 041
     Dates: start: 20160831
  9. BACTRIM [Concomitant]
     Active Substance: SULFAMETHOXAZOLE\TRIMETHOPRIM
     Indication: PRODUCT USED FOR UNKNOWN INDICATION
     Dosage: 2880 MG, QW (411.4286 MILLIGRAM)
     Route: 065
     Dates: start: 20160818
  10. CONTRIMOXAZOLE [Concomitant]
     Indication: INFECTION
     Dosage: 960 MG, QD (2880 MG)
     Route: 048
     Dates: start: 20160818
  11. PREGABALIN. [Concomitant]
     Active Substance: PREGABALIN
     Indication: SPINAL COLUMN STENOSIS
     Dosage: 50 MG, QD (DAILY DOSE: 50 MG MILLIGRAM(S) EVERY DAY)
     Route: 048
     Dates: start: 20170915
  12. REVLIMID [Suspect]
     Active Substance: LENALIDOMIDE
     Indication: PLASMA CELL MYELOMA
     Dosage: 15 MG, 28D
     Route: 048
     Dates: start: 20160901, end: 20171005
  13. PARACETAMOL [Concomitant]
     Active Substance: ACETAMINOPHEN
     Indication: BACK PAIN
     Dosage: 500 MG, QD (2000 MG MILLIGRAM)
     Route: 048
     Dates: start: 201608
  14. CLEXANE [Concomitant]
     Active Substance: ENOXAPARIN SODIUM
     Indication: THROMBOSIS PROPHYLAXIS
     Dosage: 0.4 ML, QD (DAILY DOSE: 0.4 ML MILLILITRE(S) EVERY DAY)
     Route: 058
     Dates: start: 20160830
  15. LAXOFALK [Concomitant]
     Indication: CONSTIPATION
     Dosage: 1 DF, QD (2 SACHETS)
     Route: 048
     Dates: start: 20160822
  16. CALCIUM BROMIDE [Concomitant]
     Active Substance: CALCIUM BROMIDE
     Indication: OSTEOLYSIS
     Dosage: 500 MG, QD (DAILY DOSE: 500 MG MILLIGRAM(S) EVERY DAY)
     Route: 048
     Dates: start: 20160909
  17. DARATUMUMAB [Concomitant]
     Active Substance: DARATUMUMAB
     Indication: PLASMA CELL MYELOMA
     Dosage: 1360 MG, Q4W
     Route: 041
     Dates: start: 20170817, end: 20170915

REACTIONS (4)
  - Obstructive pancreatitis [Not Recovered/Not Resolved]
  - Ventricular extrasystoles [Not Recovered/Not Resolved]
  - Cardiac failure acute [Fatal]
  - Ventricular hypertrophy [Not Recovered/Not Resolved]

NARRATIVE: CASE EVENT DATE: 20171011
